FAERS Safety Report 14018084 (Version 1)
Quarter: 2017Q3

REPORT INFORMATION
  Report Type: Spontaneous
  Country: US (occurrence: US)
  Receive Date: 20170928
  Receipt Date: 20170928
  Transmission Date: 20171128
  Serious: No
  Sender: FDA-Public Use
  Company Number: US-AUROBINDO-AUR-APU-2017-30442

PATIENT
  Sex: Female

DRUGS (1)
  1. SUMATRIPTAN TABLETS 100MG [Suspect]
     Active Substance: SUMATRIPTAN
     Indication: MIGRAINE
     Dosage: TAKE 1 TAB AT EARLIEST ONSET OR MIGRAINE MAY REPEAT TIMES ONE NO SOONER 2 HRS. LATER AND ITS MAXIMUM
     Route: 065
     Dates: start: 20170225, end: 20170225

REACTIONS (1)
  - Drug ineffective [Unknown]
